FAERS Safety Report 7047086-6 (Version None)
Quarter: 2010Q4

REPORT INFORMATION
  Report Type: 
  Country: None (occurrence: None)
  Receive Date: 20101015
  Receipt Date: 20101005
  Transmission Date: 20110411
  Serious: Yes (Other)
  Sender: FDA-Public Use
  Company Number: CA-SANOFI-AVENTIS-2010SA056079

PATIENT
  Age: 78 Year
  Sex: Male
  Weight: 110.5 kg

DRUGS (8)
  1. DRONEDARONE HCL [Suspect]
     Route: 048
     Dates: start: 20100805, end: 20100811
  2. WARFARIN SODIUM [Suspect]
  3. ATENOLOL [Concomitant]
  4. AVAPRO [Suspect]
  5. LASIX [Concomitant]
  6. LASIX [Concomitant]
  7. HMG COA REDUCTASE INHIBITORS [Concomitant]
  8. CALCIUM CHANNEL BLOCKERS [Concomitant]

REACTIONS (1)
  - CARDIAC FAILURE CONGESTIVE [None]
